FAERS Safety Report 8445683-4 (Version None)
Quarter: 2012Q2

REPORT INFORMATION
  Report Type: 
  Country: None (occurrence: None)
  Receive Date: 20120323
  Receipt Date: 20110621
  Transmission Date: 20120825
  Serious: Yes (Other)
  Sender: FDA-Public Use
  Company Number: 163-21880-11063092

PATIENT
  Age: 82 Year
  Sex: Male
  Weight: 76.3 kg

DRUGS (1)
  1. REVLIMID [Suspect]
     Indication: MULTIPLE MYELOMA
     Dosage: 5 MG, QOD, PO
     Route: 048
     Dates: start: 20110201

REACTIONS (1)
  - THROMBOSIS [None]
